FAERS Safety Report 7265925-0 (Version None)
Quarter: 2011Q1

REPORT INFORMATION
  Report Type: 
  Country: None (occurrence: None)
  Receive Date: 20110131
  Receipt Date: 20110121
  Transmission Date: 20110831
  Serious: Yes (Hospitalization)
  Sender: FDA-Public Use
  Company Number: D0069822A

PATIENT
  Sex: Male
  Weight: 75 kg

DRUGS (7)
  1. VOTRIENT [Suspect]
     Indication: RENAL CELL CARCINOMA
     Dosage: 800MG PER DAY
     Route: 048
     Dates: start: 20101111
  2. SUTENT [Concomitant]
     Indication: METASTATIC RENAL CELL CARCINOMA
     Route: 048
     Dates: start: 20090414, end: 20090701
  3. ALLOBETA [Concomitant]
     Dosage: 300MG PER DAY
     Route: 048
  4. METOBETA [Concomitant]
     Dosage: 200MG TWICE PER DAY
     Route: 048
  5. LASIX [Concomitant]
     Indication: HYPERTENSION
     Dosage: 40MG PER DAY
     Route: 048
  6. LEVOTHYROXINE SODIUM [Concomitant]
     Indication: HYPOTHYROIDISM
     Dosage: 75UG PER DAY
     Route: 048
  7. HCT [Concomitant]
     Indication: HYPERTENSION
     Dosage: 25MG PER DAY
     Route: 048

REACTIONS (4)
  - HYPERVISCOSITY SYNDROME [None]
  - DIZZINESS [None]
  - POLYCYTHAEMIA [None]
  - HAEMOGLOBIN INCREASED [None]
